FAERS Safety Report 6031131-0 (Version None)
Quarter: 2009Q1

REPORT INFORMATION
  Report Type: 
  Country: None (occurrence: None)
  Receive Date: 20090108
  Receipt Date: 20081226
  Transmission Date: 20090719
  Serious: Yes (Hospitalization)
  Sender: FDA-Public Use
  Company Number: JP-ASTRAZENECA-2008AP08980

PATIENT
  Age: 1 Year
  Sex: Male
  Weight: 13 kg

DRUGS (10)
  1. PULMICORT RESPULES [Suspect]
     Indication: ASTHMA
     Route: 055
     Dates: start: 20070904, end: 20080511
  2. ZADITEN [Concomitant]
     Indication: FOOD ALLERGY
     Dosage: NUMBER OF SEPARATE DOSAGES UNKNOWN
     Route: 048
  3. INTAL [Concomitant]
     Indication: FOOD ALLERGY
     Dosage: NUMBER OF SEPARATE DOSAGES UNKNOWN
     Route: 048
  4. ONON DRYSYRUP [Concomitant]
     Indication: ASTHMA
     Dosage: NUMBER OF SEPARATE DOSAGES UNKNOWN
     Route: 048
  5. HOKUNALIN:TAPE [Concomitant]
     Indication: ASTHMA
     Dosage: AS REQUIRED
     Route: 062
     Dates: end: 20070909
  6. ALIMEZINE [Concomitant]
     Indication: NASOPHARYNGITIS
     Dosage: NUMBER OF SEPARATE DOSAGES UNKNOWN
     Route: 048
     Dates: start: 20071015, end: 20071020
  7. ALIMEZINE [Concomitant]
     Dosage: NUMBER OF SEPARATE DOSAGES UNKNOWN
     Route: 048
     Dates: start: 20080310, end: 20080317
  8. MUCODYNE [Concomitant]
     Indication: NASOPHARYNGITIS
     Dosage: NUMBER OF SEPARATE DOSAGES UNKNOWN
     Route: 048
     Dates: start: 20071015, end: 20071020
  9. MUCODYNE [Concomitant]
     Dosage: NUMBER OF SEPARATE DOSAGES UNKNOWN
     Route: 048
     Dates: start: 20080310, end: 20080317
  10. BRICANYL SYRUP [Concomitant]
     Indication: NASOPHARYNGITIS
     Dosage: NUMBER OF SEPARATE DOSAGES UNKNOWN
     Route: 048
     Dates: start: 20071015, end: 20071020

REACTIONS (2)
  - PNEUMONIA [None]
  - STOMATITIS [None]
